FAERS Safety Report 7098330-0 (Version None)
Quarter: 2010Q4

REPORT INFORMATION
  Report Type: 
  Country: None (occurrence: None)
  Receive Date: 20101112
  Receipt Date: 20101104
  Transmission Date: 20110411
  Serious: Yes (Hospitalization, Other)
  Sender: FDA-Public Use
  Company Number: US-PFIZER INC-2010140777

PATIENT
  Sex: Female

DRUGS (1)
  1. CHANTIX [Suspect]
     Dosage: UNK
     Dates: start: 20070808

REACTIONS (6)
  - ANXIETY [None]
  - DEPRESSION [None]
  - HOSTILITY [None]
  - MOOD SWINGS [None]
  - PARANOIA [None]
  - SUICIDE ATTEMPT [None]
